FAERS Safety Report 13560860 (Version 2)
Quarter: 2017Q2

REPORT INFORMATION
  Report Type: Report from Study
  Country: None (occurrence: US)
  Receive Date: 20170518
  Receipt Date: 20170610
  Transmission Date: 20170830
  Serious: Yes (Other)
  Sender: FDA-Public Use
  Company Number: US-ABBVIE-17K-163-1978534-00

PATIENT
  Sex: Male

DRUGS (1)
  1. HUMIRA [Suspect]
     Active Substance: ADALIMUMAB
     Indication: CROHN^S DISEASE
     Route: 058

REACTIONS (5)
  - Post procedural complication [Recovering/Resolving]
  - Sinus disorder [Not Recovered/Not Resolved]
  - Middle ear effusion [Unknown]
  - Hypoacusis [Unknown]
  - Ear discomfort [Recovering/Resolving]

NARRATIVE: CASE EVENT DATE: 2017
